FAERS Safety Report 4708190-8 (Version None)
Quarter: 2005Q2

REPORT INFORMATION
  Report Type: 
  Country: None (occurrence: None)
  Receive Date: 20050629
  Receipt Date: 20050513
  Transmission Date: 20051028
  Serious: No
  Sender: FDA-Public Use
  Company Number: 05P-163-0300444

PATIENT
  Age: 76 Year
  Sex: Female
  Weight: 76.6579 kg

DRUGS (9)
  1. HUMIRA [Suspect]
     Indication: RHEUMATOID ARTHRITIS
     Dosage: 40 MG, 1 IN 2 WK, SUBCUTANEOUS
     Route: 058
     Dates: start: 20040301
  2. RISEDRONATE SODIUM [Concomitant]
  3. METHOTREXATE [Concomitant]
  4. FOLIC ACID [Concomitant]
  5. AMITRIPTYLINE HCL [Concomitant]
  6. ULTRACET [Concomitant]
  7. DIGINAL CREAM [Concomitant]
  8. ASPIRIN [Concomitant]
  9. VALSARTAN [Concomitant]

REACTIONS (2)
  - CYSTITIS [None]
  - OEDEMA PERIPHERAL [None]
